FAERS Safety Report 16095186 (Version 1)
Quarter: 2019Q1

REPORT INFORMATION
  Report Type: Spontaneous
  Country: US (occurrence: US)
  Receive Date: 20190320
  Receipt Date: 20190320
  Transmission Date: 20190418
  Serious: Yes (Other)
  Sender: FDA-Public Use
  Company Number: US-TEVA-2019-US-1027056

PATIENT
  Age: 71 Year
  Sex: Female

DRUGS (1)
  1. ALENDRONATE SODIUM. [Suspect]
     Active Substance: ALENDRONATE SODIUM
     Route: 065
     Dates: start: 201610, end: 201705

REACTIONS (1)
  - Chorioretinitis [Recovering/Resolving]

NARRATIVE: CASE EVENT DATE: 201701
